FAERS Safety Report 17456244 (Version 1)
Quarter: 2020Q1

REPORT INFORMATION
  Report Type: Spontaneous
  Country: US (occurrence: US)
  Receive Date: 20200225
  Receipt Date: 20200225
  Transmission Date: 20200409
  Serious: No
  Sender: FDA-Public Use
  Company Number: None

PATIENT
  Age: 81 Year
  Sex: Male

DRUGS (1)
  1. OCTREOTIDE. [Suspect]
     Active Substance: OCTREOTIDE
     Indication: DIARRHOEA
     Route: 058
     Dates: start: 20200216, end: 20200217

REACTIONS (2)
  - Peripheral swelling [None]
  - Swelling face [None]

NARRATIVE: CASE EVENT DATE: 20200217
